FAERS Safety Report 18649066 (Version 3)
Quarter: 2021Q1

REPORT INFORMATION
  Report Type: Spontaneous
  Country: US (occurrence: US)
  Receive Date: 20201222
  Receipt Date: 20210209
  Transmission Date: 20210419
  Serious: No
  Sender: FDA-Public Use
  Company Number: US-SA-2020SA360986

PATIENT
  Sex: Female

DRUGS (1)
  1. LANTUS [Suspect]
     Active Substance: INSULIN GLARGINE
     Dosage: 38 IU, QD
     Route: 065
     Dates: start: 2016

REACTIONS (3)
  - Feeling abnormal [Unknown]
  - Visual impairment [Unknown]
  - Blood glucose increased [Unknown]
